FAERS Safety Report 8154908 (Version 4)
Quarter: 2013Q3

REPORT INFORMATION
  Report Type: Spontaneous
  Country: CA (occurrence: CA)
  Receive Date: 20110923
  Receipt Date: 20130724
  Transmission Date: 20140515
  Serious: Yes (Other)
  Sender: FDA-Public Use
  Company Number: CA-ROCHE-GNE324761

PATIENT
  Age: 57 Year
  Sex: Female

DRUGS (6)
  1. XOLAIR [Suspect]
     Indication: ASTHMA
     Dosage: 300 MG, Q2W
     Route: 058
     Dates: start: 20090205
  2. XOLAIR [Suspect]
     Dosage: UNK
     Route: 058
     Dates: start: 20090630
  3. SYMBICORT [Concomitant]
     Indication: PRODUCT USED FOR UNKNOWN INDICATION
  4. PULMICORT [Concomitant]
     Indication: PRODUCT USED FOR UNKNOWN INDICATION
  5. PREDNISONE [Concomitant]
     Indication: PRODUCT USED FOR UNKNOWN INDICATION
  6. SALINEX [Concomitant]
     Indication: PRODUCT USED FOR UNKNOWN INDICATION

REACTIONS (15)
  - Pneumonia [Unknown]
  - Hepatitis C [Unknown]
  - Sinusitis [Unknown]
  - Sciatic nerve injury [Unknown]
  - Ecchymosis [Unknown]
  - Fall [Unknown]
  - Productive cough [Unknown]
  - Hypotension [Unknown]
  - Bronchitis [Unknown]
  - Influenza [Unknown]
  - Upper respiratory tract infection [Unknown]
  - Nasopharyngitis [Unknown]
  - Fatigue [Unknown]
  - Influenza like illness [Unknown]
  - Thirst [Recovered/Resolved]
